FAERS Safety Report 8726210 (Version 4)
Quarter: 2019Q4

REPORT INFORMATION
  Report Type: Spontaneous
  Country: US (occurrence: US)
  Receive Date: 20120816
  Receipt Date: 20191219
  Transmission Date: 20200122
  Serious: Yes (Hospitalization)
  Sender: FDA-Public Use
  Company Number: US-UCBSA-063382

PATIENT
  Age: 55 Year
  Sex: Male

DRUGS (16)
  1. GLYBURIDE. [Concomitant]
     Active Substance: GLYBURIDE
  2. GLIPIZIDE. [Concomitant]
     Active Substance: GLIPIZIDE
     Indication: TYPE 2 DIABETES MELLITUS
  3. CIMZIA [Suspect]
     Active Substance: CERTOLIZUMAB PEGOL
     Indication: CROHN^S DISEASE
     Dosage: 400 MG, EV 4 WEEKS
     Route: 058
     Dates: start: 200901, end: 20120703
  4. PREDNISONE. [Concomitant]
     Active Substance: PREDNISONE
  5. LASIX [Concomitant]
     Active Substance: FUROSEMIDE
     Dosage: 40 MG, ONCE DAILY (QD)
  6. SIMVASTATIN. [Concomitant]
     Active Substance: SIMVASTATIN
     Dosage: AT BED TIME
  7. ADVAIR HFA [Concomitant]
     Active Substance: FLUTICASONE PROPIONATE\SALMETEROL XINAFOATE
  8. LISINOPRIL. [Concomitant]
     Active Substance: LISINOPRIL
     Dosage: 10 MG, ONCE DAILY (QD)
  9. COUMADIN [Concomitant]
     Active Substance: WARFARIN SODIUM
     Indication: DEEP VEIN THROMBOSIS
  10. OXYCODONE [Concomitant]
     Active Substance: OXYCODONE
     Indication: OSTEOARTHRITIS
     Dosage: TOATL DAILY DOSE: 120 MG
  11. OXYCODONE [Concomitant]
     Active Substance: OXYCODONE
     Indication: OSTEOARTHRITIS
     Dosage: 30 MG TAB, 1-2 TABS DAILY AS NEEDED
  12. ADVAIR HFA [Concomitant]
     Active Substance: FLUTICASONE PROPIONATE\SALMETEROL XINAFOATE
     Dosage: 250 MCG, 50 MCG POWDER, 1 PUFF 2 TIMES A DAY
  13. GLIPIZIDE. [Concomitant]
     Active Substance: GLIPIZIDE
     Dosage: 5 MG, 2X/DAY (BID)
  14. COMBIVENT [Concomitant]
     Active Substance: ALBUTEROL SULFATE\IPRATROPIUM BROMIDE
     Dosage: 90 MCG-18 MCG/INH, 2 PUFFS FOUR TIMES A DAY
  15. GLIPIZIDE. [Concomitant]
     Active Substance: GLIPIZIDE
     Indication: TYPE 2 DIABETES MELLITUS
     Dosage: 2.5 MG TAB, EXTENDED RELEASE, 1 TAB ONCE DAILY
  16. CEFAZOLIN [Concomitant]
     Active Substance: CEFAZOLIN
     Dosage: FOR APPROXIMATELY 6 DAYS

REACTIONS (8)
  - Decreased appetite [Recovered/Resolved]
  - Skin discolouration [Unknown]
  - Sepsis [Recovered/Resolved]
  - Cellulitis [Recovered/Resolved]
  - Sinus congestion [Unknown]
  - Joint swelling [Unknown]
  - Constipation [Unknown]
  - Abdominal pain [Recovering/Resolving]

NARRATIVE: CASE EVENT DATE: 2012
